FAERS Safety Report 22000268 (Version 1)
Quarter: 2023Q1

REPORT INFORMATION
  Report Type: Spontaneous
  Country: CO (occurrence: CO)
  Receive Date: 20230216
  Receipt Date: 20230216
  Transmission Date: 20230418
  Serious: Yes (Life-Threatening, Other)
  Sender: FDA-Public Use
  Company Number: CO-002147023-NVSC2023CO035050

PATIENT
  Age: 75 Year
  Sex: Female

DRUGS (2)
  1. KISQALI [Suspect]
     Active Substance: RIBOCICLIB
     Indication: Breast cancer stage IV
     Dosage: 600 MG, QD
     Route: 048
     Dates: start: 202211
  2. LETROZOLE [Suspect]
     Active Substance: LETROZOLE
     Indication: Breast cancer stage IV
     Dosage: 2.5 MG, QD
     Route: 048
     Dates: start: 202211

REACTIONS (9)
  - Aspartate aminotransferase abnormal [Unknown]
  - Alanine aminotransferase abnormal [Unknown]
  - Blood bilirubin abnormal [Unknown]
  - Blood alkaline phosphatase abnormal [Unknown]
  - Blood lactate dehydrogenase abnormal [Unknown]
  - Hepatic enzyme abnormal [Unknown]
  - Hepatotoxicity [Unknown]
  - Bilirubin conjugated abnormal [Unknown]
  - Blood bilirubin unconjugated [Unknown]
